FAERS Safety Report 6818737-3 (Version None)
Quarter: 2010Q2

REPORT INFORMATION
  Report Type: 
  Country: None (occurrence: None)
  Receive Date: 20100630
  Receipt Date: 20100624
  Transmission Date: 20101027
  Serious: Yes (Other)
  Sender: FDA-Public Use
  Company Number: 009483

PATIENT
  Age: 52 Year
  Sex: Male
  Weight: 80 kg

DRUGS (3)
  1. VIMPAT [Suspect]
     Indication: EPILEPSY
     Dosage: 150 MG BID ORAL, ORAL
     Route: 048
     Dates: start: 20090701, end: 20091101
  2. TEGRETOL [Concomitant]
  3. FRISIUM [Concomitant]

REACTIONS (1)
  - PSYCHOTIC DISORDER [None]
